FAERS Safety Report 9563197 (Version 1)
Quarter: 2013Q3

REPORT INFORMATION
  Report Type: Spontaneous
  Country: US (occurrence: US)
  Receive Date: 20130927
  Receipt Date: 20130927
  Transmission Date: 20140515
  Serious: No
  Sender: FDA-Public Use
  Company Number: US-BRISTOL-MYERS SQUIBB COMPANY-18951491

PATIENT
  Age: 66 Year
  Sex: Female
  Weight: 117.91 kg

DRUGS (8)
  1. ONGLYZA TABS 2.5 MG [Suspect]
     Indication: DIABETES MELLITUS
     Dates: start: 2011
  2. CRESTOR [Suspect]
     Indication: BLOOD CHOLESTEROL
     Dates: start: 20130521, end: 20130525
  3. JANUVIA [Concomitant]
     Indication: DIABETES MELLITUS
     Route: 048
  4. WELCHOL [Concomitant]
     Indication: BLOOD CHOLESTEROL
     Dates: start: 2011
  5. LETROZOLE [Concomitant]
     Route: 048
     Dates: start: 2006
  6. LISINOPRIL [Concomitant]
     Indication: PROPHYLAXIS
     Dates: start: 2010
  7. PANTOPRAZOLE [Concomitant]
     Dates: start: 2010
  8. HYDROCHLOROTHIAZIDE [Concomitant]
     Dates: start: 2006

REACTIONS (2)
  - Myalgia [Recovering/Resolving]
  - Arthralgia [Recovering/Resolving]
